FAERS Safety Report 4668585-8 (Version None)
Quarter: 2005Q2

REPORT INFORMATION
  Report Type: 
  Country: None (occurrence: None)
  Receive Date: 20050519
  Receipt Date: 20050503
  Transmission Date: 20051028
  Serious: Yes (Hospitalization)
  Sender: FDA-Public Use
  Company Number: 1574

PATIENT
  Sex: Female

DRUGS (1)
  1. AMNESTEEM [Suspect]
     Dosage: 1 PILL, QOD, PO
     Route: 048
     Dates: start: 20040625, end: 20040702

REACTIONS (7)
  - DRY EYE [None]
  - DYSPNOEA [None]
  - EAR PAIN [None]
  - EYE PRURITUS [None]
  - HEADACHE [None]
  - HYPOAESTHESIA [None]
  - MYOCARDIAL INFARCTION [None]
